FAERS Safety Report 6897276-8 (Version None)
Quarter: 2010Q3

REPORT INFORMATION
  Report Type: 
  Country: None (occurrence: None)
  Receive Date: 20100802
  Receipt Date: 20070503
  Transmission Date: 20110219
  Serious: No
  Sender: FDA-Public Use
  Company Number: US-PFIZER INC-2007037023

PATIENT
  Sex: Female

DRUGS (1)
  1. LYRICA [Suspect]
     Dates: start: 20070101

REACTIONS (4)
  - DIZZINESS [None]
  - EUPHORIC MOOD [None]
  - FEELING ABNORMAL [None]
  - VISION BLURRED [None]
